FAERS Safety Report 24622753 (Version 1)
Quarter: 2024Q4

REPORT INFORMATION
  Report Type: Report from Study
  Country: US (occurrence: US)
  Receive Date: 20241115
  Receipt Date: 20241115
  Transmission Date: 20250115
  Serious: No
  Sender: ROCHE
  Company Number: US-ROCHE-10000116419

PATIENT
  Age: 44 Year
  Sex: Female
  Weight: 70.31 kg

DRUGS (6)
  1. OCREVUS [Suspect]
     Active Substance: OCRELIZUMAB
     Indication: Primary progressive multiple sclerosis
     Dosage: DOSAGE INFORMATION: 300 MG AT DAY 1 AND DAY 14 THEN 600MG INTRAVENOUSLY EVERY 6 MONTHS.
     Route: 042
     Dates: start: 202204
  2. DICYCLOMINE HYDROCHLORIDE [Concomitant]
     Active Substance: DICYCLOMINE HYDROCHLORIDE
     Route: 048
  3. GABAPENTIN [Concomitant]
     Active Substance: GABAPENTIN
     Route: 048
  4. QULIPTA [Concomitant]
     Active Substance: ATOGEPANT
     Route: 048
  5. RIZATRIPTAN [Concomitant]
     Active Substance: RIZATRIPTAN
     Indication: Headache
     Route: 048
  6. UBRELVY [Concomitant]
     Active Substance: UBROGEPANT
     Route: 048

REACTIONS (7)
  - Central nervous system lesion [Not Recovered/Not Resolved]
  - Neoplasm [Not Recovered/Not Resolved]
  - Feeling abnormal [Not Recovered/Not Resolved]
  - Vertigo [Unknown]
  - Migraine [Unknown]
  - Neuropathy peripheral [Unknown]
  - JC polyomavirus test positive [Unknown]

NARRATIVE: CASE EVENT DATE: 20240901
